FAERS Safety Report 13914353 (Version 2)
Quarter: 2017Q3

REPORT INFORMATION
  Report Type: Spontaneous
  Country: US (occurrence: US)
  Receive Date: 20170829
  Receipt Date: 20170831
  Transmission Date: 20171127
  Serious: No
  Sender: FDA-Public Use
  Company Number: US-PFIZER INC-2017368909

PATIENT
  Age: 34 Year
  Sex: Female

DRUGS (5)
  1. IBUPROFEN. [Concomitant]
     Active Substance: IBUPROFEN
     Indication: DYSMENORRHOEA
     Dosage: 200 MG, UNK, (EVERY 3 OR 4 HOURS OR SO)
     Route: 048
  2. ADVIL MENSTRUAL PAIN [Suspect]
     Active Substance: IBUPROFEN SODIUM
     Indication: HEADACHE
  3. IBUPROFEN. [Concomitant]
     Active Substance: IBUPROFEN
     Indication: MENSTRUAL DISCOMFORT
  4. ADVIL MENSTRUAL PAIN [Suspect]
     Active Substance: IBUPROFEN SODIUM
     Indication: MENSTRUAL DISCOMFORT
  5. ADVIL MENSTRUAL PAIN [Suspect]
     Active Substance: IBUPROFEN SODIUM
     Indication: DYSMENORRHOEA
     Dosage: 200 MG, UNK, (EVERY 3 OR 4 HOURS)
     Route: 048
     Dates: start: 201704, end: 201708

REACTIONS (1)
  - Drug ineffective [Not Recovered/Not Resolved]

NARRATIVE: CASE EVENT DATE: 201704
